FAERS Safety Report 24062285 (Version 1)
Quarter: 2024Q3

REPORT INFORMATION
  Report Type: Spontaneous
  Country: US (occurrence: US)
  Receive Date: 20240708
  Receipt Date: 20240708
  Transmission Date: 20241016
  Serious: Yes (Hospitalization, Other)
  Sender: WOODWARD PHARMA SERVICES
  Company Number: US-WOODWARD-2024-US-036143

PATIENT
  Age: 54 Year
  Sex: Male

DRUGS (2)
  1. CARVEDILOL [Suspect]
     Active Substance: CARVEDILOL
     Indication: Intentional overdose
     Dosage: APPROXIMATELY 365 TABLETS OF 25 MG (8,750 MG IN TOTAL)
  2. INSULIN GLARGINE [Suspect]
     Active Substance: INSULIN GLARGINE
     Indication: Intentional overdose
     Dosage: APPROXIMATELY 3,000 UNITS

REACTIONS (6)
  - Loss of consciousness [Recovered/Resolved]
  - Lethargy [Unknown]
  - Hyperhidrosis [Unknown]
  - Bradycardia [Unknown]
  - Hypoglycaemia [Recovering/Resolving]
  - Intentional overdose [Unknown]
